FAERS Safety Report 8619063-2 (Version None)
Quarter: 2012Q3

REPORT INFORMATION
  Report Type: 
  Country: None (occurrence: None)
  Receive Date: 20120810
  Receipt Date: 20120729
  Transmission Date: 20120928
  Serious: Yes (Disabling, Other)
  Sender: FDA-Public Use
  Company Number: AUR-APL-2012-03346

PATIENT
  Age: 81 Year
  Sex: Female
  Weight: 61.2 kg

DRUGS (11)
  1. SYNTHROID [Suspect]
     Indication: THYROID DISORDER
     Dosage: 50 MCG, 1 D
  2. FISH OIL (FISH OIL) [Suspect]
     Indication: PRODUCT USED FOR UNKNOWN INDICATION
  3. OXYBUTYNIN CHLORIDE [Suspect]
     Indication: HYPERTONIC BLADDER
     Dosage: 10 MG
  4. HYDROCODONE BITARTRATE [Suspect]
     Indication: SPINAL CORD DISORDER
     Dosage: 350 MG, AS NEEDED (ONE OR TWO TIMES)
  5. RIVASTIGMINE TARTRATE [Suspect]
     Indication: DEMENTIA
  6. LISINOPRIL [Suspect]
     Indication: HYPERTENSION
     Dosage: 30 MG (10 MG, 3 IN 1 D)
  7. ASPIRIN [Suspect]
     Indication: HYPERTENSION
     Dosage: 81 MG, 1 D
  8. XANAX [Suspect]
     Indication: PANIC ATTACK
     Dosage: 1 MG, AS REQUIRED)
  9. MULTIVITAMIN [Suspect]
     Indication: PRODUCT USED FOR UNKNOWN INDICATION
     Dosage: UNKNOWN
  10. LYRICA [Suspect]
     Indication: VEIN PAIN
     Dosage: 50 MG, 1 D, ORAL
     Route: 048
     Dates: start: 20120726, end: 20120728
  11. LOVASTATIN [Suspect]
     Indication: BLOOD CHOLESTEROL
     Dosage: 20 MG,  D

REACTIONS (23)
  - INSOMNIA [None]
  - NAUSEA [None]
  - FATIGUE [None]
  - WEIGHT DECREASED [None]
  - ANXIETY [None]
  - OEDEMA PERIPHERAL [None]
  - CHILLS [None]
  - ABDOMINAL PAIN UPPER [None]
  - INFLUENZA [None]
  - VEIN DISORDER [None]
  - PANIC ATTACK [None]
  - BLOOD PRESSURE INCREASED [None]
  - PAIN [None]
  - MUSCLE SPASMS [None]
  - DIZZINESS [None]
  - DRY MOUTH [None]
  - MALAISE [None]
  - DRUG INTERACTION [None]
  - GAIT DISTURBANCE [None]
  - PYREXIA [None]
  - VISION BLURRED [None]
  - PARAESTHESIA [None]
  - HEADACHE [None]
